FAERS Safety Report 17510130 (Version 3)
Quarter: 2020Q2

REPORT INFORMATION
  Report Type: Spontaneous
  Country: US (occurrence: US)
  Receive Date: 20200306
  Receipt Date: 20200519
  Transmission Date: 20200713
  Serious: No
  Sender: FDA-Public Use
  Company Number: US-PFIZER INC-2018246971

PATIENT
  Age: 74 Year
  Sex: Male
  Weight: 82 kg

DRUGS (2)
  1. ELELYSO [Suspect]
     Active Substance: TALIGLUCERASE ALFA
     Indication: ENZYME SUPPLEMENTATION
     Dosage: 4000 IU EVERY 2 WEEKS BY INTRAVENOUS INFUSION
     Route: 042
  2. ELELYSO [Suspect]
     Active Substance: TALIGLUCERASE ALFA
     Dosage: 5000 IU (UNITS)

REACTIONS (6)
  - Blood test abnormal [Unknown]
  - Lysozyme increased [Unknown]
  - Arthralgia [Unknown]
  - Incorrect dose administered [Unknown]
  - Chitotriosidase increased [Unknown]
  - Product prescribing error [Unknown]

NARRATIVE: CASE EVENT DATE: 20180529
